FAERS Safety Report 9051339 (Version 1)
Quarter: 2013Q1

REPORT INFORMATION
  Report Type: Spontaneous
  Country: US (occurrence: US)
  Receive Date: 20130206
  Receipt Date: 20130206
  Transmission Date: 20140127
  Serious: No
  Sender: FDA-Public Use
  Company Number: US-009507513-1301USA012514

PATIENT
  Age: 56 Year
  Sex: Female

DRUGS (3)
  1. SAPHRIS [Suspect]
     Indication: PSYCHOTIC DISORDER
     Dosage: BLACK CHERRY 10 MG DAILY AT NIGHT
     Route: 060
     Dates: start: 201209
  2. LAMICTAL [Concomitant]
  3. TRAZODONE HYDROCHLORIDE [Concomitant]

REACTIONS (3)
  - Insomnia [Unknown]
  - Sleep disorder [Unknown]
  - Feeling abnormal [Unknown]
